FAERS Safety Report 4357843-2 (Version None)
Quarter: 2004Q2

REPORT INFORMATION
  Report Type: 
  Country: None (occurrence: None)
  Receive Date: 20040512
  Receipt Date: 20040429
  Transmission Date: 20050107
  Serious: Yes (Hospitalization)
  Sender: FDA-Public Use
  Company Number: K200400659

PATIENT
  Sex: Male

DRUGS (1)
  1. ALTACE [Suspect]
     Dosage: 50 TABLETS, QD, ORAL
     Route: 048
     Dates: start: 20040401, end: 20040401

REACTIONS (2)
  - INTENTIONAL OVERDOSE [None]
  - SUICIDE ATTEMPT [None]
